FAERS Safety Report 11610495 (Version 1)
Quarter: 2015Q4

REPORT INFORMATION
  Report Type: Spontaneous
  Country: US (occurrence: US)
  Receive Date: 20151008
  Receipt Date: 20151008
  Transmission Date: 20160304
  Serious: No
  Sender: FDA-Public Use
  Company Number: US-AMGEN-USASP2015102244

PATIENT
  Sex: Female

DRUGS (2)
  1. ENBREL [Suspect]
     Active Substance: ETANERCEPT
     Indication: RHEUMATOID ARTHRITIS
     Dosage: 50 MG, QWK
     Route: 065
     Dates: start: 201506
  2. METHOTREXATE [Concomitant]
     Active Substance: METHOTREXATE
     Dosage: UNK

REACTIONS (8)
  - Pruritus [Unknown]
  - Upper-airway cough syndrome [Unknown]
  - Balance disorder [Unknown]
  - Productive cough [Unknown]
  - Throat irritation [Unknown]
  - Arthralgia [Unknown]
  - Feeling abnormal [Unknown]
  - Chills [Unknown]

NARRATIVE: CASE EVENT DATE: 201509
